FAERS Safety Report 25408268 (Version 1)
Quarter: 2025Q2

REPORT INFORMATION
  Report Type: Spontaneous
  Country: US (occurrence: US)
  Receive Date: 20250606
  Receipt Date: 20250606
  Transmission Date: 20250716
  Serious: No
  Sender: SANOFI AVENTIS
  Company Number: US-SA-2025SA159185

PATIENT
  Age: 78 Year
  Sex: Male

DRUGS (1)
  1. DUPIXENT [Suspect]
     Active Substance: DUPILUMAB
     Route: 058
     Dates: start: 20250527, end: 20250527

REACTIONS (4)
  - Stomatitis [Unknown]
  - Facial pain [Unknown]
  - Condition aggravated [Unknown]
  - Headache [Unknown]

NARRATIVE: CASE EVENT DATE: 20250602
